FAERS Safety Report 6526466-9 (Version None)
Quarter: 2009Q4

REPORT INFORMATION
  Report Type: 
  Country: None (occurrence: None)
  Receive Date: 20091229
  Receipt Date: 20091215
  Transmission Date: 20100525
  Serious: Yes (Hospitalization)
  Sender: FDA-Public Use
  Company Number: 2009AP004908

PATIENT
  Age: 45 Year
  Sex: Female

DRUGS (3)
  1. OXCARBAZEPINE [Suspect]
     Indication: PARTIAL SEIZURES
  2. TOPIRAMATE [Concomitant]
  3. LEVETIRACETAM [Concomitant]

REACTIONS (3)
  - BLOOD AMYLASE INCREASED [None]
  - HEPATITIS CHOLESTATIC [None]
  - LIPASE INCREASED [None]
